FAERS Safety Report 7954631-2 (Version None)
Quarter: 2011Q4

REPORT INFORMATION
  Report Type: 
  Country: None (occurrence: None)
  Receive Date: 20111202
  Receipt Date: 20111128
  Transmission Date: 20120403
  Serious: Yes (Other)
  Sender: FDA-Public Use
  Company Number: PHHY2011US57187

PATIENT
  Sex: Female

DRUGS (4)
  1. FERROUS SULFATE TAB [Concomitant]
     Indication: IRON DEFICIENCY
     Dosage: UNK UKN, UNK
     Route: 048
  2. GILENYA [Suspect]
     Indication: MULTIPLE SCLEROSIS
     Dosage: 0.5 MG, QD
     Route: 048
     Dates: start: 20110610
  3. PROTONIX [Concomitant]
     Indication: GASTROINTESTINAL DISORDER
     Dosage: UNK UKN, DAILY
     Route: 048
  4. GABAPENTIN [Concomitant]
     Indication: SENSORY DISTURBANCE
     Dosage: UNK UKN, UNK
     Route: 048

REACTIONS (2)
  - DIPLOPIA [None]
  - VISUAL IMPAIRMENT [None]
